FAERS Safety Report 5661968-9 (Version None)
Quarter: 2008Q1

REPORT INFORMATION
  Report Type: 
  Country: None (occurrence: None)
  Receive Date: 20080201
  Receipt Date: 20060531
  Transmission Date: 20080703
  Serious: No
  Sender: FDA-Public Use
  Company Number: 20084577

PATIENT
  Age: 14 Year
  Sex: Female

DRUGS (2)
  1. LIORESAL [Suspect]
     Indication: MUSCLE SPASTICITY
     Dosage: DAILY, INTRATHECAL
     Route: 037
  2. LIDOCAINE [Concomitant]

REACTIONS (5)
  - DYSURIA [None]
  - MALAISE [None]
  - NAUSEA [None]
  - PARAESTHESIA [None]
  - RASH [None]
